FAERS Safety Report 14025945 (Version 1)
Quarter: 2017Q3

REPORT INFORMATION
  Report Type: Spontaneous
  Country: JP (occurrence: JP)
  Receive Date: 20170929
  Receipt Date: 20170929
  Transmission Date: 20171128
  Serious: Yes (Other)
  Sender: FDA-Public Use
  Company Number: JP-SUN PHARMACEUTICAL INDUSTRIES LTD-2015R1-97912

PATIENT
  Age: 71 Year
  Sex: Female

DRUGS (12)
  1. VINCRISTINE [Concomitant]
     Active Substance: VINCRISTINE
     Indication: ACUTE LEUKAEMIA
  2. IMATINIB [Suspect]
     Active Substance: IMATINIB
     Indication: PHILADELPHIA CHROMOSOME POSITIVE
     Dosage: 400 MG, DAILY
     Route: 048
  3. VINCRISTINE [Concomitant]
     Active Substance: VINCRISTINE
     Indication: PHILADELPHIA CHROMOSOME POSITIVE
     Dosage: 1 MG/ BODY ON DAY 1, REPEATED EVERY 4 WEEKS
     Route: 042
  4. IMATINIB [Suspect]
     Active Substance: IMATINIB
     Indication: ACUTE LEUKAEMIA
     Dosage: 300 MG, DAILY
     Route: 065
  5. CYTARABINE. [Concomitant]
     Active Substance: CYTARABINE
     Indication: ACUTE LEUKAEMIA
  6. METHOTREXATE. [Concomitant]
     Active Substance: METHOTREXATE
     Indication: PHILADELPHIA CHROMOSOME POSITIVE
     Dosage: UNK
     Route: 065
  7. PREDNISOLONE. [Concomitant]
     Active Substance: PREDNISOLONE
     Indication: ACUTE LEUKAEMIA
  8. IDARUBICIN [Concomitant]
     Active Substance: IDARUBICIN
     Indication: ACUTE LEUKAEMIA
  9. CYTARABINE. [Concomitant]
     Active Substance: CYTARABINE
     Indication: PHILADELPHIA CHROMOSOME POSITIVE
     Dosage: UNK
     Route: 065
  10. IDARUBICIN [Concomitant]
     Active Substance: IDARUBICIN
     Indication: PHILADELPHIA CHROMOSOME POSITIVE
     Dosage: UNK
     Route: 065
  11. METHOTREXATE. [Concomitant]
     Active Substance: METHOTREXATE
     Indication: ACUTE LEUKAEMIA
  12. PREDNISOLONE. [Concomitant]
     Active Substance: PREDNISOLONE
     Indication: PHILADELPHIA CHROMOSOME POSITIVE
     Dosage: 60 MG/BODY ON DAYS 1-5, REPEATED EVERY 4 WEEKS
     Route: 048

REACTIONS (2)
  - Gene mutation [Unknown]
  - Leukaemia recurrent [Recovered/Resolved]
